FAERS Safety Report 15298479 (Version 1)
Quarter: 2018Q3

REPORT INFORMATION
  Report Type: Spontaneous
  Country: US (occurrence: US)
  Receive Date: 20180808
  Receipt Date: 20180808
  Transmission Date: 20181010
  Serious: Yes (Hospitalization, Congenital Anomaly)
  Sender: FDA-Public Use
  Company Number: None

PATIENT
  Age: 81 Year
  Sex: Female
  Weight: 78.75 kg

DRUGS (15)
  1. CLOPIDOGREL [Suspect]
     Active Substance: CLOPIDOGREL BISULFATE
     Indication: ANTICOAGULANT THERAPY
     Dosage: ?          QUANTITY:1 CAPSULE(S);?
     Route: 048
  2. TRIAMTERENE. [Concomitant]
     Active Substance: TRIAMTERENE
  3. METOPOLROL [Concomitant]
  4. GABAPENTIN. [Concomitant]
     Active Substance: GABAPENTIN
  5. ATORVASTATIN [Concomitant]
     Active Substance: ATORVASTATIN
  6. ALBUTEROL. [Concomitant]
     Active Substance: ALBUTEROL
  7. VITAMIN D [Concomitant]
     Active Substance: CHOLECALCIFEROL
  8. ALLOPURINOL. [Concomitant]
     Active Substance: ALLOPURINOL
  9. ACETAMINOPHEN. [Concomitant]
     Active Substance: ACETAMINOPHEN
  10. OLMESARTAN [Concomitant]
     Active Substance: OLMESARTAN
  11. LIDOCAINE PATCH [Concomitant]
     Active Substance: LIDOCAINE
  12. MULTIVITAMIN W/IRON [Concomitant]
  13. BCOMPLEX [Concomitant]
  14. BABY ASPIRIN [Concomitant]
     Active Substance: ASPIRIN
  15. VITAMIN C [Concomitant]
     Active Substance: ASCORBIC ACID

REACTIONS (4)
  - Haemorrhage [None]
  - Haemoglobin decreased [None]
  - Skin atrophy [None]
  - Therapy change [None]
